FAERS Safety Report 8005459-9 (Version None)
Quarter: 2011Q4

REPORT INFORMATION
  Report Type: 
  Country: None (occurrence: None)
  Receive Date: 20111223
  Receipt Date: 20111216
  Transmission Date: 20120403
  Serious: Yes (Hospitalization)
  Sender: FDA-Public Use
  Company Number: US-ROCHE-1023582

PATIENT

DRUGS (2)
  1. AVASTIN [Suspect]
     Indication: HEPATIC NEOPLASM MALIGNANT
     Dosage: OVER 30-90 MIN
     Route: 042
  2. TEMSIROLIMUS [Suspect]
     Indication: HEPATIC NEOPLASM MALIGNANT
     Dosage: ON DAYS 1,8, 15, 22
     Route: 042

REACTIONS (3)
  - URINARY TRACT INFECTION [None]
  - CONFUSIONAL STATE [None]
  - BACK PAIN [None]
